FAERS Safety Report 9311368 (Version 3)
Quarter: 2014Q1

REPORT INFORMATION
  Report Type: Spontaneous
  Country: US (occurrence: US)
  Receive Date: 20130528
  Receipt Date: 20140331
  Transmission Date: 20141002
  Serious: Yes (Other)
  Sender: FDA-Public Use
  Company Number: US-BRISTOL-MYERS SQUIBB COMPANY-17391335

PATIENT
  Sex: Male

DRUGS (1)
  1. ABILIFY [Suspect]

REACTIONS (9)
  - Cardiac disorder [Unknown]
  - Liver disorder [Unknown]
  - Deafness [Unknown]
  - Heart rate decreased [Unknown]
  - Visual acuity reduced [Unknown]
  - Oedema peripheral [Unknown]
  - Face oedema [Unknown]
  - Fungal infection [Unknown]
  - Rash [Unknown]
